FAERS Safety Report 6244509-7 (Version None)
Quarter: 2009Q2

REPORT INFORMATION
  Report Type: 
  Country: None (occurrence: None)
  Receive Date: 20090623
  Receipt Date: 20090623
  Transmission Date: 20091009
  Serious: Yes (Life-Threatening, Hospitalization, Other)
  Sender: FDA-Public Use
  Company Number: None

PATIENT
  Age: 60 Year
  Sex: Female
  Weight: 63.5036 kg

DRUGS (2)
  1. TYSABRI [Suspect]
     Indication: MULTIPLE SCLEROSIS
     Dosage: MONTHLY SQ
     Route: 058
     Dates: start: 20070101, end: 20080615
  2. AVONEX [Suspect]
     Indication: MULTIPLE SCLEROSIS
     Dosage: WEEKLY CUTANEOUS
     Route: 003

REACTIONS (2)
  - BRAIN NEOPLASM [None]
  - GLIOBLASTOMA [None]
